FAERS Safety Report 6258895-5 (Version None)
Quarter: 2009Q3

REPORT INFORMATION
  Report Type: 
  Country: None (occurrence: None)
  Receive Date: 20090707
  Receipt Date: 20090629
  Transmission Date: 20100115
  Serious: Yes (Other)
  Sender: FDA-Public Use
  Company Number: US-GILEAD-2009-0022852

PATIENT
  Sex: Female
  Weight: 57.658 kg

DRUGS (9)
  1. LETAIRIS [Suspect]
     Indication: PULMONARY ARTERIAL HYPERTENSION
     Route: 048
     Dates: start: 20080418
  2. REVATIO [Concomitant]
  3. LISINOPRIL [Concomitant]
  4. SOTALOL HYDROCHLORIDE [Concomitant]
  5. CEFTIN [Concomitant]
  6. PRILOSEC [Concomitant]
  7. COENZYME Q10 [Concomitant]
  8. CENTRUM [Concomitant]
  9. FLAXSEED OIL [Concomitant]

REACTIONS (2)
  - RED BLOOD CELL COUNT DECREASED [None]
  - SMALL INTESTINAL HAEMORRHAGE [None]
